FAERS Safety Report 4779483-3 (Version None)
Quarter: 2005Q3

REPORT INFORMATION
  Report Type: 
  Country: None (occurrence: None)
  Receive Date: 20050923
  Receipt Date: 20050908
  Transmission Date: 20060218
  Serious: Yes (Hospitalization)
  Sender: FDA-Public Use
  Company Number: 2005125837

PATIENT
  Age: 75 Year
  Sex: Female

DRUGS (6)
  1. DETROL LA [Suspect]
     Indication: HYPERTONIC BLADDER
     Dosage: 4 MG (4 MG, 1 IN 1 D) ABOUT A YEAR AGO OR LESS
  2. VYTORIN [Suspect]
     Indication: BLOOD CHOLESTEROL
  3. NIFEDIPINE [Suspect]
     Indication: ILL-DEFINED DISORDER
     Dosage: 60 MG
  4. OXYBUTYNIN CHLORIDE [Suspect]
     Indication: HYPERTONIC BLADDER
  5. ANTIFIBRINOLYTICS (ANTIFIBRINOLYTICS) [Concomitant]
     Indication: EPISTAXIS
  6. ALL OTHER THERAPEUTIC PRODUCTS (ALL OTHER THERAPEUTIC PRODUCTS) [Suspect]
     Indication: ILL-DEFINED DISORDER

REACTIONS (10)
  - ACCIDENT [None]
  - ANGIOPATHY [None]
  - DIARRHOEA [None]
  - DYSGEUSIA [None]
  - DYSPEPSIA [None]
  - EPISTAXIS [None]
  - FLATULENCE [None]
  - NASAL DISORDER [None]
  - SOMNOLENCE [None]
  - UPPER LIMB FRACTURE [None]
